FAERS Safety Report 13533653 (Version 6)
Quarter: 2018Q4

REPORT INFORMATION
  Report Type: Spontaneous
  Country: US (occurrence: US)
  Receive Date: 20170510
  Receipt Date: 20181226
  Transmission Date: 20190204
  Serious: No
  Sender: FDA-Public Use
  Company Number: US-BRISTOL-MYERS SQUIBB COMPANY-BMS-2017-040196

PATIENT
  Age: 28 Year
  Sex: Male

DRUGS (2)
  1. SPRYCEL [Suspect]
     Active Substance: DASATINIB
     Indication: ACUTE MYELOID LEUKAEMIA (IN REMISSION)
     Dosage: 140 MG, QD
     Route: 048
     Dates: start: 20160111
  2. SPRYCEL [Suspect]
     Active Substance: DASATINIB
     Indication: CHRONIC MYELOID LEUKAEMIA
     Dosage: 140 MG, QD
     Route: 048
     Dates: start: 20160112

REACTIONS (9)
  - Hordeolum [Unknown]
  - Dry eye [Unknown]
  - Visual impairment [Unknown]
  - Swelling of eyelid [Unknown]
  - Swelling [Unknown]
  - Eyelid irritation [Unknown]
  - Nail discolouration [Unknown]
  - Fatigue [Unknown]
  - Eyelid pain [Unknown]

NARRATIVE: CASE EVENT DATE: 20170101
